FAERS Safety Report 4890042-4 (Version None)
Quarter: 2006Q1

REPORT INFORMATION
  Report Type: 
  Country: None (occurrence: None)
  Receive Date: 20060120
  Receipt Date: 20060104
  Transmission Date: 20060701
  Serious: Yes (Hospitalization)
  Sender: FDA-Public Use
  Company Number: DSA_27640_2006

PATIENT
  Age: 78 Year
  Sex: Female

DRUGS (7)
  1. ENALAPRIL [Suspect]
     Dosage: 20 MG Q DAY
  2. AMILORIDE HCL [Suspect]
     Dosage: 5 MG Q DAY
  3. SPIRONOLACTONE [Suspect]
     Dosage: 50 MG Q DAY
  4. DIGOXIN [Suspect]
     Dosage: 0.25 MG Q DAY
  5. PROCAINAMIDE [Suspect]
     Dosage: 200 MG IV
     Route: 042
  6. LIDOCAINE [Suspect]
     Indication: TACHYCARDIA
     Dosage: 100 MG IV
     Route: 042
  7. LIDOCAINE [Suspect]
     Dosage: 2 DF CON IV
     Route: 042

REACTIONS (23)
  - ATRIAL FIBRILLATION [None]
  - BLOOD BICARBONATE DECREASED [None]
  - BLOOD CREATININE INCREASED [None]
  - BLOOD GLUCOSE INCREASED [None]
  - BLOOD PH DECREASED [None]
  - BLOOD PRESSURE DECREASED [None]
  - BLOOD UREA INCREASED [None]
  - BRADYCARDIA [None]
  - CARDIAC MURMUR [None]
  - DEHYDRATION [None]
  - ELECTROCARDIOGRAM P WAVE ABNORMAL [None]
  - ELECTROCARDIOGRAM QRS COMPLEX PROLONGED [None]
  - ELECTROCARDIOGRAM QRS COMPLEX SHORTENED [None]
  - HAEMODIALYSIS [None]
  - HAEMOGLOBIN DECREASED [None]
  - HYPERKALAEMIA [None]
  - HYPONATRAEMIA [None]
  - PCO2 DECREASED [None]
  - PO2 DECREASED [None]
  - SYNCOPE [None]
  - TACHYCARDIA [None]
  - THERAPEUTIC AGENT TOXICITY [None]
  - VENTRICULAR HYPERTROPHY [None]
